FAERS Safety Report 24748141 (Version 1)
Quarter: 2024Q4

REPORT INFORMATION
  Report Type: Spontaneous
  Country: US (occurrence: US)
  Receive Date: 20241218
  Receipt Date: 20241218
  Transmission Date: 20250114
  Serious: Yes (Other)
  Sender: CHIESI
  Company Number: US-CHIESI-2024CHF08060

PATIENT
  Age: 24 Year
  Sex: Female

DRUGS (2)
  1. ELFABRIO [Suspect]
     Active Substance: PEGUNIGALSIDASE ALFA-IWXJ
     Indication: Product used for unknown indication
     Dosage: UNK, QOW
     Route: 042
     Dates: end: 20241210
  2. ELFABRIO [Suspect]
     Active Substance: PEGUNIGALSIDASE ALFA-IWXJ
     Dosage: UNK, QOW
     Route: 042
     Dates: start: 20241210

REACTIONS (2)
  - Syncope [Recovered/Resolved]
  - Tachycardia [Recovered/Resolved]

NARRATIVE: CASE EVENT DATE: 20241210
